FAERS Safety Report 7051876-3 (Version None)
Quarter: 2010Q4

REPORT INFORMATION
  Report Type: 
  Country: None (occurrence: None)
  Receive Date: 20101019
  Receipt Date: 20101011
  Transmission Date: 20110411
  Serious: Yes (Other)
  Sender: FDA-Public Use
  Company Number: GXKR2010TR11485

PATIENT
  Age: 45 Year
  Sex: Male

DRUGS (1)
  1. METHYLPREDNISOLONE 4MG TAB [Suspect]
     Indication: BACK PAIN
     Dosage: 80 MG, UNK
     Route: 008

REACTIONS (2)
  - CHORIORETINOPATHY [None]
  - VISION BLURRED [None]
